FAERS Safety Report 16497523 (Version 2)
Quarter: 2019Q3

REPORT INFORMATION
  Report Type: Spontaneous
  Country: BR (occurrence: BR)
  Receive Date: 20190628
  Receipt Date: 20190711
  Transmission Date: 20191004
  Serious: No
  Sender: FDA-Public Use
  Company Number: BR-ALLERGAN-1926584US

PATIENT
  Sex: Male

DRUGS (6)
  1. NEOVITE MAX [Concomitant]
  2. HYPERTONICO 5 [Concomitant]
  3. OPTIVE FUSION (CARBOXYMETHYLCELLULOSE SODIUM\GLYCERIN) [Suspect]
     Active Substance: CARBOXYMETHYLCELLULOSE SODIUM\GLYCERIN
     Indication: DRY EYE
     Dosage: UNK UNK, PRN
     Route: 047
  4. OPTIVE FUSION (CARBOXYMETHYLCELLULOSE SODIUM\GLYCERIN) [Suspect]
     Active Substance: CARBOXYMETHYLCELLULOSE SODIUM\GLYCERIN
     Indication: EYE LUBRICATION THERAPY
  5. LUTEIN [Concomitant]
     Active Substance: LUTEIN
  6. VITAMINS WITH MINERALS [Concomitant]
     Active Substance: MINERALS\VITAMINS

REACTIONS (2)
  - Visual impairment [Unknown]
  - Product lot number issue [Unknown]
